FAERS Safety Report 13333824 (Version 2)
Quarter: 2017Q2

REPORT INFORMATION
  Report Type: Spontaneous
  Country: US (occurrence: US)
  Receive Date: 20170314
  Receipt Date: 20170404
  Transmission Date: 20170830
  Serious: Yes (Hospitalization, Other)
  Sender: FDA-Public Use
  Company Number: US-WEST-WARD PHARMACEUTICALS CORP.-US-H14001-17-00667

PATIENT
  Age: 77 Year
  Sex: Female
  Weight: 56.7 kg

DRUGS (5)
  1. ATORVASTATIN [Concomitant]
     Active Substance: ATORVASTATIN
     Indication: BLOOD CHOLESTEROL ABNORMAL
     Route: 065
  2. ZITHROMAX [Suspect]
     Active Substance: AZITHROMYCIN DIHYDRATE
     Indication: STAPHYLOCOCCAL INFECTION
     Route: 048
     Dates: start: 20170211, end: 20170211
  3. LEVOTHYROXINE. [Concomitant]
     Active Substance: LEVOTHYROXINE
     Indication: THYROID HORMONES DECREASED
     Route: 065
  4. DOXYCYCLINE HYC [Suspect]
     Active Substance: DOXYCYCLINE HYCLATE
     Indication: STAPHYLOCOCCAL INFECTION
     Route: 048
     Dates: start: 2017, end: 20170209
  5. AMLODIPINE [Concomitant]
     Active Substance: AMLODIPINE BESYLATE
     Indication: BLOOD PRESSURE MANAGEMENT
     Route: 065

REACTIONS (8)
  - Abdominal discomfort [Recovered/Resolved]
  - Transient ischaemic attack [Unknown]
  - Tremor [Recovered/Resolved]
  - Decreased appetite [Recovered/Resolved]
  - Malaise [Recovered/Resolved]
  - Headache [Recovered/Resolved]
  - Lethargy [Recovered/Resolved]
  - Blood pressure increased [Recovered/Resolved]

NARRATIVE: CASE EVENT DATE: 201702
